FAERS Safety Report 17067084 (Version 2)
Quarter: 2019Q4

REPORT INFORMATION
  Report Type: Spontaneous
  Country: DE (occurrence: DE)
  Receive Date: 20191122
  Receipt Date: 20191213
  Transmission Date: 20200122
  Serious: Yes (Hospitalization, Other)
  Sender: FDA-Public Use
  Company Number: DE-MYLANLABS-2019M1112612

PATIENT
  Age: 45 Year
  Sex: Male
  Weight: 74 kg

DRUGS (7)
  1. MIRTAZAPINE. [Suspect]
     Active Substance: MIRTAZAPINE
     Indication: INSOMNIA
     Dosage: 7.5 MILLIGRAM, HS
     Route: 048
     Dates: start: 20170208, end: 201704
  2. TESTOGEL [Concomitant]
     Active Substance: TESTOSTERONE
     Indication: SECONDARY HYPOGONADISM
     Dosage: UNK
  3. MIRTAZAPINE. [Suspect]
     Active Substance: MIRTAZAPINE
     Dosage: 0.5 DOSAGE FORM, QD, QPM
     Route: 065
     Dates: start: 20190606
  4. MIRTAZELON [Concomitant]
     Indication: INSOMNIA
     Dosage: 15 MILLIGRAM, QD, 0-0-0-1/2
     Route: 048
  5. MIRTAZAPINE. [Suspect]
     Active Substance: MIRTAZAPINE
     Indication: DEPRESSION
     Dosage: UNK, 7.5-15 MG
     Route: 048
     Dates: start: 2013, end: 201612
  6. MIRTAZAPINE. [Suspect]
     Active Substance: MIRTAZAPINE
     Dosage: 7.5 MILLIGRAM, HS
     Route: 048
     Dates: start: 20190517
  7. MIRTAZAPINE. [Suspect]
     Active Substance: MIRTAZAPINE
     Dosage: 15 MILLIGRAM, HS
     Route: 048

REACTIONS (20)
  - Blood pressure abnormal [Unknown]
  - Paraesthesia [Unknown]
  - Wrong technique in product usage process [Unknown]
  - Panic attack [Unknown]
  - Benign prostatic hyperplasia [Unknown]
  - Abnormal faeces [Unknown]
  - Depression [Unknown]
  - Drug ineffective [Unknown]
  - Obsessive-compulsive personality disorder [Unknown]
  - Influenza like illness [Unknown]
  - Hepatitis [Unknown]
  - Varicocele [Unknown]
  - Sleep apnoea syndrome [Unknown]
  - Syncope [Unknown]
  - Sleep disorder [Unknown]
  - Thyroid mass [Unknown]
  - Dyspepsia [Unknown]
  - Abdominal discomfort [Recovered/Resolved]
  - Perioral dermatitis [Unknown]
  - Rash [Unknown]

NARRATIVE: CASE EVENT DATE: 20130926
